FAERS Safety Report 17875188 (Version 2)
Quarter: 2022Q2

REPORT INFORMATION
  Report Type: Spontaneous
  Country: FR (occurrence: FR)
  Receive Date: 20200609
  Receipt Date: 20220401
  Transmission Date: 20220721
  Serious: Yes (Other)
  Sender: FDA-Public Use
  Company Number: None

PATIENT
  Age: 54 Year
  Sex: Male

DRUGS (7)
  1. AZITHROMYCIN DIHYDRATE [Suspect]
     Active Substance: AZITHROMYCIN DIHYDRATE
     Indication: Legionella infection
     Route: 048
     Dates: start: 20190909, end: 20190918
  2. SPIRAMYCIN [Suspect]
     Active Substance: SPIRAMYCIN
     Indication: Legionella infection
     Route: 048
     Dates: start: 20190906, end: 20190908
  3. LEVOFLOXACIN [Suspect]
     Active Substance: LEVOFLOXACIN
     Indication: Legionella infection
     Route: 048
     Dates: start: 20190906, end: 20190909
  4. AUGMENTIN [Suspect]
     Active Substance: AMOXICILLIN\CLAVULANATE POTASSIUM
     Indication: Legionella infection
     Route: 065
     Dates: start: 20190903, end: 20190906
  5. TAHOR [Concomitant]
     Active Substance: ATORVASTATIN CALCIUM
     Indication: Dyslipidaemia
     Dosage: FORM STRENGTH: 10 MG, UNIT DOSE: 10 MG, FREQUENCY TIME- 2 DAYS
     Route: 048
  6. INDAPAMIDE\PERINDOPRIL [Concomitant]
     Active Substance: INDAPAMIDE\PERINDOPRIL
     Indication: Hypertension
     Dosage: FORM STRENGTH: 2.5 MG/0.625 MG, FREQUENCY TIME- 1 DAY, UNIT DOSE: 1 DF
     Route: 048
     Dates: start: 20200912
  7. KEPPRA [Concomitant]
     Active Substance: LEVETIRACETAM
     Indication: Product used for unknown indication
     Dosage: FORM STRENGTH: 500 MG, UNIT DOSE: 500 MG, FREQUENCY TIME- 1 DAY
     Route: 048

REACTIONS (1)
  - Rash maculo-papular [Recovered/Resolved]

NARRATIVE: CASE EVENT DATE: 20190912
